FAERS Safety Report 4415051-0 (Version None)
Quarter: 2004Q3

REPORT INFORMATION
  Report Type: 
  Country: None (occurrence: None)
  Receive Date: 20040803
  Receipt Date: 20040721
  Transmission Date: 20050211
  Serious: Yes (Hospitalization)
  Sender: FDA-Public Use
  Company Number: 2004UW15275

PATIENT
  Age: 57 Year
  Sex: Male

DRUGS (4)
  1. CRESTOR [Suspect]
     Dosage: 10 MG PO
     Route: 048
     Dates: start: 20040101, end: 20040301
  2. CRESTOR [Suspect]
     Dosage: 20 MG PO
     Route: 048
     Dates: start: 20040301, end: 20040701
  3. IBUPROFEN [Concomitant]
  4. VITAMIN B-12 [Concomitant]

REACTIONS (8)
  - BURNS SECOND DEGREE [None]
  - CHILLS [None]
  - HEAT STROKE [None]
  - HOARSENESS [None]
  - MUSCLE CRAMP [None]
  - MYOPATHY [None]
  - TETANUS [None]
  - TREMOR [None]
